FAERS Safety Report 16254378 (Version 1)
Quarter: 2019Q2

REPORT INFORMATION
  Report Type: Spontaneous
  Country: US (occurrence: US)
  Receive Date: 20190430
  Receipt Date: 20190430
  Transmission Date: 20190711
  Serious: No
  Sender: FDA-Public Use
  Company Number: US-ASTRAZENECA-2019SE61914

PATIENT
  Age: 61 Year
  Sex: Female
  Weight: 74.8 kg

DRUGS (3)
  1. SEROQUEL [Suspect]
     Active Substance: QUETIAPINE FUMARATE
     Indication: SLEEP DISORDER
     Route: 048
     Dates: start: 1999
  2. SEROQUEL [Suspect]
     Active Substance: QUETIAPINE FUMARATE
     Indication: CHEST DISCOMFORT
     Route: 048
     Dates: start: 1999
  3. METFORMIN [Concomitant]
     Active Substance: METFORMIN HYDROCHLORIDE
     Indication: DIABETES MELLITUS
     Dosage: UNKNOWN
     Route: 048

REACTIONS (8)
  - Insomnia [Not Recovered/Not Resolved]
  - Hypothyroidism [Unknown]
  - Glucose tolerance impaired [Unknown]
  - Dry mouth [Recovering/Resolving]
  - Product use in unapproved indication [Unknown]
  - Intentional product misuse [Unknown]
  - Weight increased [Unknown]
  - Off label use [Unknown]

NARRATIVE: CASE EVENT DATE: 1999
